FAERS Safety Report 10041975 (Version 1)
Quarter: 2014Q1

REPORT INFORMATION
  Report Type: Spontaneous
  Country: US (occurrence: US)
  Receive Date: 20140327
  Receipt Date: 20140327
  Transmission Date: 20141002
  Serious: Yes (Other)
  Sender: FDA-Public Use
  Company Number: US-AMGEN-USASP2014021365

PATIENT
  Age: 63 Year
  Sex: Male
  Weight: 80.72 kg

DRUGS (22)
  1. ENBREL [Suspect]
     Indication: PRODUCT USED FOR UNKNOWN INDICATION
     Dosage: 50 MG, QWK
     Route: 065
  2. DALIRESP [Concomitant]
     Dosage: 500 MUG, UNK
  3. GABAPENTIN [Concomitant]
     Dosage: 100 MG, UNK
  4. CLARITIN                           /00413701/ [Concomitant]
     Dosage: 10 MG, UNK
  5. CARVEDILOL [Concomitant]
     Dosage: 12.5 MG, UNK
  6. DIGOXIN [Concomitant]
     Dosage: 0.25 MG, UNK
  7. SPIRONOLACTON [Concomitant]
     Dosage: 100 MG, UNK
  8. LISINOPRIL [Concomitant]
     Dosage: 10 MG, UNK
  9. NEXIUM                             /01479303/ [Concomitant]
     Dosage: 20 MG, UNK
  10. AVODART [Concomitant]
     Dosage: 0.5 MG, UNK
  11. TAMSULOSIN [Concomitant]
     Dosage: 0.4 MG, UNK
  12. ALLOPURINOL [Concomitant]
     Dosage: 100 MG, UNK
  13. FENOFIBRATE [Concomitant]
     Dosage: 200 MG, UNK
  14. HYDROCODONE W/APAP                 /00607101/ [Concomitant]
     Dosage: 10-325MG
  15. SODIUM BICARBONATE [Concomitant]
     Dosage: 325 MG, UNK
  16. NYSTATIN [Concomitant]
     Dosage: UNK
  17. LATANOPROST [Concomitant]
     Dosage: 0.005%
  18. DULERA [Concomitant]
     Dosage: 100-5 MCG
  19. SPIRIVA [Concomitant]
     Dosage: UNK
  20. VENTOLIN                           /00139501/ [Concomitant]
     Dosage: UNK
  21. VICTOZA [Concomitant]
     Dosage: 18MG/3ML
  22. LEVEMIR [Concomitant]
     Dosage: UNK

REACTIONS (1)
  - Pneumonia [Unknown]
